FAERS Safety Report 16309013 (Version 1)
Quarter: 2019Q2

REPORT INFORMATION
  Report Type: Spontaneous
  Country: US (occurrence: US)
  Receive Date: 20190514
  Receipt Date: 20190514
  Transmission Date: 20190711
  Serious: No
  Sender: FDA-Public Use
  Company Number: US-PFIZER INC-2017199784

PATIENT
  Age: 61 Year
  Sex: Female

DRUGS (15)
  1. ENBREL [Concomitant]
     Active Substance: ETANERCEPT
     Indication: ARTHRITIS
     Dosage: UNK
     Dates: start: 200612
  2. CLOBETASOL [Concomitant]
     Active Substance: CLOBETASOL
     Indication: SKIN LESION
     Dosage: UNK, 2X/DAY (FOR 2 WEEKS)
     Dates: start: 20170531
  3. HYDROCORTISONE. [Concomitant]
     Active Substance: HYDROCORTISONE
     Dosage: UNK, 2X/DAY (APPLY TO AFFECTED AREA)
  4. XELJANZ XR [Suspect]
     Active Substance: TOFACITINIB CITRATE
     Indication: PSORIATIC ARTHROPATHY
     Dosage: 11 MG, DAILY
     Route: 048
     Dates: start: 201802
  5. ALLOPURINOL. [Concomitant]
     Active Substance: ALLOPURINOL
     Indication: BLOOD URIC ACID ABNORMAL
     Dosage: 2 DF, DAILY
  6. FOLIC ACID. [Concomitant]
     Active Substance: FOLIC ACID
     Dosage: UNK
     Route: 048
  7. COENZYME Q10 [Concomitant]
     Active Substance: UBIDECARENONE
     Dosage: 400 MG, DAILY
     Route: 048
  8. HALOBETASOL PROPIONATE. [Concomitant]
     Active Substance: HALOBETASOL PROPIONATE
     Dosage: UNK, 2X/DAY [APPLY TO THE AFFECTED AREA]
  9. ENBREL [Concomitant]
     Active Substance: ETANERCEPT
     Dosage: 50 MG, WEEKLY
  10. MORPHINE [Concomitant]
     Active Substance: MORPHINE
     Dosage: 15 MG, 2X/DAY
     Route: 048
  11. CYMBALTA [Concomitant]
     Active Substance: DULOXETINE HYDROCHLORIDE
     Dosage: 2 DF, DAILY
  12. TIZANIDINE. [Concomitant]
     Active Substance: TIZANIDINE
     Indication: SLEEP DISORDER
     Dosage: 4 MG, 1X/DAY [1-2]
     Route: 048
  13. OTEZLA [Concomitant]
     Active Substance: APREMILAST
     Dosage: 10 MG, UNK
     Dates: start: 20170531
  14. LIDODERM [Concomitant]
     Active Substance: LIDOCAINE
     Dosage: UNK (700 MG/PATCH)
  15. FLAXSEED [Concomitant]
     Active Substance: FLAX SEED
     Dosage: 3 DF, DAILY [TAKE 3 PILLS]

REACTIONS (1)
  - Drug ineffective [Unknown]
